FAERS Safety Report 26203251 (Version 1)
Quarter: 2025Q4

REPORT INFORMATION
  Report Type: Spontaneous
  Country: US (occurrence: None)
  Receive Date: 20251223
  Receipt Date: 20251223
  Transmission Date: 20260118
  Serious: No
  Sender: FDA-CTU
  Company Number: None

PATIENT
  Age: 62 Year
  Sex: Male

DRUGS (6)
  1. JAKAFI [Suspect]
     Active Substance: RUXOLITINIB
     Dosage: FREQUENCY : TWICE A DAY;
     Route: 048
  2. DEFERASIROX [Concomitant]
     Active Substance: DEFERASIROX
  3. CLONAZEPAM [Concomitant]
     Active Substance: CLONAZEPAM
  4. PAROXETINE [Concomitant]
     Active Substance: PAROXETINE
  5. ROSUVASTATIN [Concomitant]
     Active Substance: ROSUVASTATIN
  6. METOPROLOL SUCCINATE [Concomitant]
     Active Substance: METOPROLOL SUCCINATE

REACTIONS (2)
  - Therapy interrupted [None]
  - Nonspecific reaction [None]
